FAERS Safety Report 7484810-2 (Version None)
Quarter: 2011Q2

REPORT INFORMATION
  Report Type: 
  Country: None (occurrence: None)
  Receive Date: 20110517
  Receipt Date: 20110422
  Transmission Date: 20111010
  Serious: Yes (Hospitalization, Other)
  Sender: FDA-Public Use
  Company Number: PHHY2011KR34134

PATIENT
  Sex: Female

DRUGS (1)
  1. EXJADE [Suspect]
     Indication: IRON OVERLOAD
     Dosage: UNK
     Route: 048

REACTIONS (6)
  - MYELOFIBROSIS [None]
  - OSTEOMYELITIS [None]
  - SPLENOMEGALY [None]
  - ABDOMINAL DISTENSION [None]
  - DECREASED APPETITE [None]
  - GENERAL PHYSICAL CONDITION ABNORMAL [None]
